FAERS Safety Report 12138444 (Version 3)
Quarter: 2016Q1

REPORT INFORMATION
  Report Type: Spontaneous
  Country: US (occurrence: US)
  Receive Date: 20160302
  Receipt Date: 20160311
  Transmission Date: 20160526
  Serious: No
  Sender: FDA-Public Use
  Company Number: US-PFIZER INC-2016080707

PATIENT
  Age: 78 Year
  Sex: Female
  Weight: 63 kg

DRUGS (1)
  1. ALPRAZOLAM. [Suspect]
     Active Substance: ALPRAZOLAM
     Indication: ANXIETY
     Dosage: UNK

REACTIONS (7)
  - Weight increased [Unknown]
  - Tremor [Unknown]
  - Drug hypersensitivity [Unknown]
  - Malaise [Unknown]
  - Paraesthesia [Unknown]
  - Drug intolerance [Unknown]
  - Reaction to drug excipients [Unknown]
